FAERS Safety Report 9752888 (Version 2)
Quarter: 2014Q1

REPORT INFORMATION
  Report Type: Spontaneous
  Country: IT (occurrence: IT)
  Receive Date: 20131213
  Receipt Date: 20140123
  Transmission Date: 20141002
  Serious: Yes (Hospitalization, Other)
  Sender: FDA-Public Use
  Company Number: IT-ASTRAZENECA-2013SE89032

PATIENT
  Age: 9571 Day
  Sex: Male

DRUGS (3)
  1. SEROQUEL [Suspect]
     Route: 048
     Dates: start: 20130829, end: 20130829
  2. LARGACTIL [Concomitant]
     Route: 048
  3. DEPAKIN CHRONO [Concomitant]
     Route: 048

REACTIONS (5)
  - Overdose [Unknown]
  - Intentional self-injury [Unknown]
  - Suicidal ideation [Unknown]
  - Toxicity to various agents [Unknown]
  - Somnolence [Unknown]
